FAERS Safety Report 23127044 (Version 2)
Quarter: 2023Q4

REPORT INFORMATION
  Report Type: Spontaneous
  Country: FR (occurrence: FR)
  Receive Date: 20231030
  Receipt Date: 20231115
  Transmission Date: 20240110
  Serious: Yes (Other)
  Sender: FDA-Public Use
  Company Number: FR-BRISTOL-MYERS SQUIBB COMPANY-2023-151900

PATIENT
  Age: 56 Year
  Sex: Female

DRUGS (11)
  1. NULOJIX [Suspect]
     Active Substance: BELATACEPT
     Indication: Renal transplant
     Dosage: INTRAVENOUS ROUTE (IN PERFUSION), 250 MG PDR SOL PERF VI/1
     Route: 042
     Dates: start: 20190715
  2. AMOXICILLIN [Concomitant]
     Active Substance: AMOXICILLIN
     Indication: Product used for unknown indication
     Dosage: 1G TB FILM-C DISP BLST/14, 2 TABLETS 1 TIME 1 HOUR BEFORE DENTAL CARE
     Route: 048
     Dates: start: 20221123
  3. BACTRIM [Concomitant]
     Active Substance: SULFAMETHOXAZOLE\TRIMETHOPRIM
     Indication: Product used for unknown indication
     Dosage: TB ADULT B/50
     Route: 048
     Dates: start: 20200402
  4. SODIUM CHLORIDE [Concomitant]
     Active Substance: SODIUM CHLORIDE
     Indication: Product used for unknown indication
     Dosage: 0.9% LAVOISIER S PERF 12/FL/250ML: SOLUTION FOR PERFUSION INTRAMUSCULAR 2 POUCHES ONCE A MONTH
     Route: 030
     Dates: start: 20210424
  5. ESOMEPRAZOLE MAGNESIUM [Concomitant]
     Active Substance: ESOMEPRAZOLE\ESOMEPRAZOLE MAGNESIUM\ESOMEPRAZOLE MAGNESIUM DIHYDRATE
     Indication: Product used for unknown indication
     Dosage: 20 MG TB GASTRO-RES BLST/28 : GASTRORESISTANT TABLET ORALLY 1 TABLET A DAY + 1 BOX
     Route: 048
     Dates: start: 20210427
  6. MIRCERA [Concomitant]
     Active Substance: METHOXY POLYETHYLENE GLYCOL-EPOETIN BETA
     Indication: Product used for unknown indication
     Dosage: 100 UG/0.3ML S INJ PREFILLED SYRINGE 1SER/0.3ML: INJECTABLE SOLUTION INTRAVENOUS 75 UG A DAY EVERY 3
     Route: 042
     Dates: start: 20210630
  7. MYFORTIC [Concomitant]
     Active Substance: MYCOPHENOLATE SODIUM
     Indication: Product used for unknown indication
     Dosage: 360 MG TB GASTRO-RES 12BLST/10: GASTRORESISTANT TABLET ORALLY 4 TABLETS A DAY (2 TABLETS MORNING, 2
     Route: 048
     Dates: start: 20160928
  8. SECTRAL [Concomitant]
     Active Substance: ACEBUTOLOL HYDROCHLORIDE
     Indication: Product used for unknown indication
     Dosage: 5 MG TB ORIDUSP BLST/30TB: TABLET ORODISPERSIBLE BUCCAL ROUTE 1 TABLET ONCE A DAY
     Route: 002
     Dates: start: 20160524
  9. TAHOR [Concomitant]
     Active Substance: ATORVASTATIN CALCIUM
     Indication: Product used for unknown indication
     Dosage: 10 MG TB FILM-C BLST/28 : FILMCOATED TABLET ORALLY 1 TABLET A DAY
     Route: 048
  10. CHOLECALCIFEROL [Concomitant]
     Active Substance: CHOLECALCIFEROL
     Indication: Product used for unknown indication
     Dosage: 100 000 UI S DRINK AMP/2ML: DRINKABLE SOLUTION ORALLY 1 AMPOULE ONCE EVERY 3 MONTHS
     Route: 048
     Dates: start: 20210427
  11. MABTHERA [Concomitant]
     Active Substance: RITUXIMAB
     Indication: Product used for unknown indication
     Dosage: 500 MG S DILUTE PERF VI/50ML: SOLUTION TO DILUTE FOR PERFUSION INTRAVENOUS ROUTE (IN PERFUSION) ACCO
     Route: 042
     Dates: start: 20230821

REACTIONS (3)
  - Central nervous system lymphoma [Unknown]
  - Optic neuritis [Unknown]
  - Myelitis [Unknown]
